FAERS Safety Report 7592976-9 (Version None)
Quarter: 2011Q3

REPORT INFORMATION
  Report Type: 
  Country: None (occurrence: None)
  Receive Date: 20110706
  Receipt Date: 20110627
  Transmission Date: 20111222
  Serious: Yes (Hospitalization)
  Sender: FDA-Public Use
  Company Number: US-GLAXOSMITHKLINE-A0934086A

PATIENT
  Age: 67 Year
  Sex: Female
  Weight: 125 kg

DRUGS (16)
  1. LAPATINIB [Suspect]
     Indication: HEAD AND NECK CANCER
     Dosage: 1250MG PER DAY
     Route: 048
     Dates: start: 20110614, end: 20110623
  2. GABAPENTIN [Concomitant]
  3. IBUPROFEN [Concomitant]
     Dosage: 600MG THREE TIMES PER DAY
  4. CALCIUM ALGINATE [Concomitant]
     Route: 061
  5. OXYCODONE HCL [Concomitant]
     Indication: PAIN
     Dosage: 10MG AS REQUIRED
  6. SENNA [Concomitant]
     Indication: CONSTIPATION
     Dosage: 2TAB TWICE PER DAY
  7. DOCUSATE SODIUM [Concomitant]
     Indication: CONSTIPATION
     Dosage: 100MG TWICE PER DAY
  8. FENTANYL [Concomitant]
     Route: 062
  9. MEGESTROL ACETATE [Concomitant]
     Dosage: 5ML PER DAY
  10. NYSTATIN [Concomitant]
     Dosage: 1TSP FOUR TIMES PER DAY
  11. ADVAIR DISKUS 100/50 [Concomitant]
     Dosage: 1PFU TWICE PER DAY
     Route: 055
  12. ASPIRIN [Concomitant]
     Dosage: 81MG PER DAY
  13. PROAIR HFA [Concomitant]
     Indication: DYSPNOEA
     Dosage: 2PFU AS REQUIRED
  14. CAPECITABINE [Suspect]
     Indication: HEAD AND NECK CANCER
     Dosage: 1500MG TWICE PER DAY
     Route: 048
     Dates: start: 20110614, end: 20110623
  15. ALBUTEROL SULFATE AUTOHALER [Concomitant]
     Indication: DYSPNOEA
     Dosage: 2PFU AS REQUIRED
     Route: 055
  16. ZOFRAN [Concomitant]

REACTIONS (2)
  - INFECTION [None]
  - ASTHENIA [None]
